FAERS Safety Report 19140908 (Version 1)
Quarter: 2021Q2

REPORT INFORMATION
  Report Type: Spontaneous
  Country: EG (occurrence: EG)
  Receive Date: 20210415
  Receipt Date: 20210415
  Transmission Date: 20210717
  Serious: Yes (Other)
  Sender: FDA-Public Use
  Company Number: EG-HIKMA PHARMACEUTICALS USA INC.-EG-H14001-21-01725

PATIENT
  Age: 70 Year
  Sex: Female

DRUGS (4)
  1. UNITAXEL [Suspect]
     Active Substance: PACLITAXEL
     Indication: UTERINE CANCER
     Dosage: UNKNOWN
     Route: 065
  2. UNITAXEL [Suspect]
     Active Substance: PACLITAXEL
     Indication: MALIGNANT PERITONEAL NEOPLASM
     Dosage: UNKNOWN
     Route: 065
  3. UNITAXEL [Suspect]
     Active Substance: PACLITAXEL
     Route: 065
     Dates: start: 20210228
  4. CARBOPLATIN. [Suspect]
     Active Substance: CARBOPLATIN
     Indication: PRODUCT USED FOR UNKNOWN INDICATION
     Dosage: UNKNOWN
     Route: 065
     Dates: start: 20210228

REACTIONS (8)
  - Acne [Unknown]
  - Ascites [Unknown]
  - Vision blurred [Unknown]
  - Abdominal pain [Unknown]
  - Epistaxis [Unknown]
  - Oral fungal infection [Recovered/Resolved]
  - Vomiting [Unknown]
  - Pruritus [Unknown]

NARRATIVE: CASE EVENT DATE: 20210113
